FAERS Safety Report 12891330 (Version 1)
Quarter: 2016Q4

REPORT INFORMATION
  Report Type: Spontaneous
  Country: US (occurrence: US)
  Receive Date: 20161026
  Receipt Date: 20161026
  Transmission Date: 20170207
  Serious: No
  Sender: FDA-Public Use
  Company Number: None

PATIENT
  Age: 81 Year
  Sex: Female
  Weight: 76.5 kg

DRUGS (18)
  1. PROBIOTIC ACIDOPHILUS [Concomitant]
     Active Substance: LACTOBACILLUS ACIDOPHILUS
  2. IPATROPIUM BROMIDE NASAL SPRAY [Concomitant]
  3. VITAMIN D3 [Concomitant]
     Active Substance: CHOLECALCIFEROL
  4. BACLOFEN 10 MG TAB ROSEMONT UPSHER-SMITH LABORATORIES, INC. [Suspect]
     Active Substance: BACLOFEN
     Indication: MYOFASCIAL PAIN SYNDROME
     Dosage: ?          QUANTITY:20 TABLET(S); AT BEDTIME?
     Route: 048
     Dates: start: 20161015, end: 20161019
  5. LOSARTIN [Concomitant]
     Active Substance: LOSARTAN
  6. CETIRIZINE [Concomitant]
     Active Substance: CETIRIZINE HYDROCHLORIDE
  7. FISH OIL [Concomitant]
     Active Substance: FISH OIL
  8. BIOTIN [Concomitant]
     Active Substance: BIOTIN
  9. SYNTHROID [Concomitant]
     Active Substance: LEVOTHYROXINE SODIUM
  10. PREDNISONE. [Concomitant]
     Active Substance: PREDNISONE
  11. FUROSEMIDE. [Concomitant]
     Active Substance: FUROSEMIDE
  12. METOPROLOL TARTRATE. [Concomitant]
     Active Substance: METOPROLOL TARTRATE
  13. GLUCOSAMINE CHRONDROITIN [Concomitant]
  14. NASONEX [Concomitant]
     Active Substance: MOMETASONE FUROATE
  15. TYLENOL [Concomitant]
     Active Substance: ACETAMINOPHEN
  16. ASPIRIN. [Concomitant]
     Active Substance: ASPIRIN
  17. NEXIUM [Concomitant]
     Active Substance: ESOMEPRAZOLE MAGNESIUM
  18. MIRAPEX TARTRATE [Concomitant]

REACTIONS (3)
  - Vision blurred [None]
  - Thinking abnormal [None]
  - Activities of daily living impaired [None]

NARRATIVE: CASE EVENT DATE: 20161019
